FAERS Safety Report 6329608-3 (Version None)
Quarter: 2009Q3

REPORT INFORMATION
  Report Type: 
  Country: None (occurrence: None)
  Receive Date: 20090825
  Receipt Date: 20090825
  Transmission Date: 20100115
  Serious: Yes (Hospitalization)
  Sender: FDA-Public Use
  Company Number: None

PATIENT
  Age: 71 Year
  Sex: Male
  Weight: 121.564 kg

DRUGS (1)
  1. GENTAMICIN [Suspect]
     Indication: ENTEROCOCCAL BACTERAEMIA
     Dosage: 710 MG 24HRS IV DRIP
     Route: 041
     Dates: start: 20090528, end: 20090629

REACTIONS (3)
  - OSCILLOPSIA [None]
  - POISONING [None]
  - VESTIBULAR DISORDER [None]
